FAERS Safety Report 24322303 (Version 1)
Quarter: 2024Q3

REPORT INFORMATION
  Report Type: Spontaneous
  Country: PT (occurrence: PT)
  Receive Date: 20240916
  Receipt Date: 20240916
  Transmission Date: 20241017
  Serious: Yes (Other)
  Sender: ROCHE
  Company Number: None

PATIENT
  Age: 62 Year
  Sex: Male

DRUGS (2)
  1. RITUXIMAB [Suspect]
     Active Substance: RITUXIMAB
     Indication: Encephalitis autoimmune
     Dosage: A CYCLE OF IV METHYLPREDNISOLONE, FOLLOWED BY RITUXIMAB
     Route: 042
  2. METHYLPREDNISOLONE [Suspect]
     Active Substance: METHYLPREDNISOLONE
     Indication: Encephalitis autoimmune
     Dosage: A CYCLE OF IV METHYLPREDNISOLONE, FOLLOWED BY RITUXIMAB
     Route: 042

REACTIONS (2)
  - JC virus CSF test positive [Unknown]
  - Off label use [Unknown]
